FAERS Safety Report 7668864-6 (Version None)
Quarter: 2011Q3

REPORT INFORMATION
  Report Type: 
  Country: None (occurrence: None)
  Receive Date: 20110808
  Receipt Date: 20110715
  Transmission Date: 20111222
  Serious: Yes (Hospitalization)
  Sender: FDA-Public Use
  Company Number: NL-AMGEN-NLDNI2011035985

PATIENT
  Age: 43 Year
  Sex: Female

DRUGS (7)
  1. ZOMETA [Concomitant]
     Dosage: UNK
     Dates: end: 20110706
  2. TAXOTERE [Suspect]
     Dosage: 125 MG, UNK
     Route: 042
     Dates: start: 20110504, end: 20110706
  3. ONDANSETRON [Suspect]
  4. CYCLOPHOSPHAMIDE [Suspect]
     Dosage: 830 MG, UNK
     Route: 042
     Dates: start: 20110504, end: 20110706
  5. NEULASTA [Suspect]
     Indication: CHEMOTHERAPY
     Dosage: UNK
  6. DOXORUBICIN HCL [Suspect]
     Dosage: 83 MG, UNK
     Route: 042
     Dates: start: 20110504, end: 20110706
  7. DEXAMETHASONE [Suspect]

REACTIONS (1)
  - GASTROENTERITIS [None]
